FAERS Safety Report 20598353 (Version 1)
Quarter: 2022Q1

REPORT INFORMATION
  Report Type: Spontaneous
  Country: CZ (occurrence: CZ)
  Receive Date: 20220315
  Receipt Date: 20220315
  Transmission Date: 20220424
  Serious: Yes (Other)
  Sender: FDA-Public Use
  Company Number: CZ-MYLANLABS-2022M1005130

PATIENT
  Age: 38 Year
  Sex: Female

DRUGS (23)
  1. TRAMADOL [Suspect]
     Active Substance: TRAMADOL
     Indication: Coccydynia
     Dosage: UNK
     Route: 065
  2. TRAMADOL [Suspect]
     Active Substance: TRAMADOL
     Indication: Pain
  3. TRAMADOL [Suspect]
     Active Substance: TRAMADOL
     Indication: Sacral pain
  4. TRAMADOL [Suspect]
     Active Substance: TRAMADOL
     Indication: Breakthrough pain
  5. DIHYDROCODEINE [Suspect]
     Active Substance: DIHYDROCODEINE
     Indication: Sacral pain
     Dosage: UNK
     Route: 065
  6. DIHYDROCODEINE [Suspect]
     Active Substance: DIHYDROCODEINE
     Indication: Breakthrough pain
  7. DIHYDROCODEINE [Suspect]
     Active Substance: DIHYDROCODEINE
     Indication: Coccydynia
  8. DIHYDROCODEINE [Suspect]
     Active Substance: DIHYDROCODEINE
     Indication: Pain
  9. IBUPROFEN [Concomitant]
     Active Substance: IBUPROFEN
     Indication: Sacral pain
     Dosage: UNK
  10. IBUPROFEN [Concomitant]
     Active Substance: IBUPROFEN
     Indication: Coccydynia
  11. IBUPROFEN [Concomitant]
     Active Substance: IBUPROFEN
     Indication: Breakthrough pain
  12. IBUPROFEN [Concomitant]
     Active Substance: IBUPROFEN
     Indication: Pain
  13. PANADOL [Concomitant]
     Active Substance: ACETAMINOPHEN
     Indication: Sacral pain
     Dosage: UNK
  14. PANADOL [Concomitant]
     Active Substance: ACETAMINOPHEN
     Indication: Breakthrough pain
  15. PANADOL [Concomitant]
     Active Substance: ACETAMINOPHEN
     Indication: Coccydynia
  16. PANADOL [Concomitant]
     Active Substance: ACETAMINOPHEN
     Indication: Pain
  17. FENTANYL [Concomitant]
     Active Substance: FENTANYL
     Indication: Breakthrough pain
     Dosage: UNK
  18. FENTANYL [Concomitant]
     Active Substance: FENTANYL
     Dosage: UNK 5X 11 MG: 1 PATCH FOR 3 DAYS, (STRENGTH100 MCG / H)
  19. Fenroo [Concomitant]
     Dosage: UNK
  20. GABAPENTIN [Concomitant]
     Active Substance: GABAPENTIN
     Indication: Breakthrough pain
     Dosage: UNK
  21. GABAPENTIN [Concomitant]
     Active Substance: GABAPENTIN
     Dosage: 300 MILLIGRAM (100X 300 MG 3X 1 TBL PER PERSON)
  22. XELODA [Concomitant]
     Active Substance: CAPECITABINE
     Dosage: UNK
     Route: 065
  23. FENTANYL [Concomitant]
     Active Substance: FENTANYL
     Indication: Breakthrough pain
     Dosage: 200 MICROGRAM
     Route: 002

REACTIONS (2)
  - Urinary retention [Recovered/Resolved]
  - Therapy partial responder [Unknown]
